FAERS Safety Report 17127526 (Version 2)
Quarter: 2019Q4

REPORT INFORMATION
  Report Type: Spontaneous
  Country: US (occurrence: US)
  Receive Date: 20191209
  Receipt Date: 20191219
  Transmission Date: 20200122
  Serious: No
  Sender: FDA-Public Use
  Company Number: US-BAYER-2019-222243

PATIENT
  Age: 65 Year
  Sex: Female

DRUGS (1)
  1. GADAVIST [Suspect]
     Active Substance: GADOBUTROL
     Indication: BREAST SCAN
     Dosage: 7 ML, ONCE
     Dates: start: 20191202, end: 20191202

REACTIONS (2)
  - Injection site pruritus [None]
  - Injection site warmth [None]

NARRATIVE: CASE EVENT DATE: 201912
